FAERS Safety Report 8145707-8 (Version None)
Quarter: 2012Q1

REPORT INFORMATION
  Report Type: 
  Country: None (occurrence: None)
  Receive Date: 20120217
  Receipt Date: 20120214
  Transmission Date: 20120608
  Serious: Yes (Death, Other)
  Sender: FDA-Public Use
  Company Number: DE-B.I. PHARMACEUTICALS,INC./RIDGEFIELD-2012-DE-00421DE

PATIENT
  Sex: Male
  Weight: 64 kg

DRUGS (3)
  1. DIGITOXIN TAB [Concomitant]
     Dosage: 1 ANZ
  2. PRADAXA [Suspect]
     Indication: ATRIAL FIBRILLATION
     Dosage: 220 MG
     Dates: end: 20120203
  3. TAMSULOSIN HCL [Concomitant]
     Dosage: 1 ANZ

REACTIONS (9)
  - DIARRHOEA HAEMORRHAGIC [None]
  - ACUTE ABDOMEN [None]
  - SEPTIC SHOCK [None]
  - GASTROINTESTINAL HAEMORRHAGE [None]
  - DEATH [None]
  - INTESTINAL ISCHAEMIA [None]
  - HYPOVOLAEMIA [None]
  - CARDIOVASCULAR INSUFFICIENCY [None]
  - CLOSTRIDIAL INFECTION [None]
